FAERS Safety Report 21006146 (Version 2)
Quarter: 2022Q2

REPORT INFORMATION
  Report Type: Report from Study
  Country: US (occurrence: US)
  Receive Date: 20220624
  Receipt Date: 20220629
  Transmission Date: 20220721
  Serious: Yes (Hospitalization)
  Sender: FDA-Public Use
  Company Number: US-GW PHARMA-2022-US-021221

PATIENT
  Age: 36 Year
  Sex: Female

DRUGS (2)
  1. EPIDIOLEX [Suspect]
     Active Substance: CANNABIDIOL
     Indication: Epilepsy
     Dosage: 2.9 MILLILITER, BID
     Route: 048
     Dates: start: 20220405
  2. VIMPAT [Concomitant]
     Active Substance: LACOSAMIDE
     Dosage: UNK

REACTIONS (2)
  - Hospitalisation [Unknown]
  - Amnesia [Recovered/Resolved]

NARRATIVE: CASE EVENT DATE: 20220520
